FAERS Safety Report 4444217-9 (Version None)
Quarter: 2004Q3

REPORT INFORMATION
  Report Type: 
  Country: None (occurrence: None)
  Receive Date: 20040902
  Receipt Date: 20040823
  Transmission Date: 20050211
  Serious: Yes (Death)
  Sender: FDA-Public Use
  Company Number: USA-2003-0010214

PATIENT
  Age: 31 Year
  Sex: Male
  Weight: 107.9 kg

DRUGS (3)
  1. OXYCODONE HCL [Suspect]
  2. MORPHINE SULFATE [Suspect]
  3. CLONAZEPAM [Suspect]

REACTIONS (10)
  - ACCIDENT [None]
  - ACCIDENT AT WORK [None]
  - ANXIETY [None]
  - APNOEA [None]
  - DEPRESSED LEVEL OF CONSCIOUSNESS [None]
  - HYPERTROPHIC CARDIOMYOPATHY [None]
  - PAIN [None]
  - SUDDEN DEATH [None]
  - THERAPEUTIC AGENT TOXICITY [None]
  - VOMITING [None]
